FAERS Safety Report 8326799-X (Version None)
Quarter: 2012Q2

REPORT INFORMATION
  Report Type: 
  Country: None (occurrence: None)
  Receive Date: 20120501
  Receipt Date: 20120424
  Transmission Date: 20120825
  Serious: Yes (Hospitalization)
  Sender: FDA-Public Use
  Company Number: AT-PFIZER INC-2008025399

PATIENT
  Age: 69 Year
  Sex: Male
  Weight: 75.5 kg

DRUGS (9)
  1. LEVOTHYROXINE [Concomitant]
     Indication: PRIMARY HYPOTHYROIDISM
     Dosage: UNK
     Dates: start: 19860701
  2. TESTOVIRON [Concomitant]
     Indication: HYPOGONADISM MALE
     Dosage: UNK
     Dates: start: 19960701
  3. GENOTROPIN [Suspect]
     Indication: GROWTH HORMONE DEFICIENCY
     Dosage: 0.2 MG, 1X/DAY
     Route: 058
     Dates: start: 19960430
  4. EUTHYROX [Concomitant]
     Indication: PRIMARY HYPOTHYROIDISM
     Dosage: UNK
     Dates: start: 20020816
  5. HYDROCORTONE [Concomitant]
     Indication: BLOOD CORTICOTROPHIN DECREASED
     Dosage: UNK
     Dates: start: 19980520
  6. OLEOVIT-D3 [Concomitant]
     Indication: OSTEOPOROSIS
     Dosage: UNK
     Dates: start: 20000529
  7. LANITOP [Concomitant]
     Indication: ARRHYTHMIA
     Dosage: UNK
     Dates: start: 19960115
  8. CORTISONE ACETATE [Concomitant]
     Indication: BLOOD CORTICOTROPHIN DECREASED
     Dosage: UNK
     Dates: start: 19860701
  9. ENAC [Concomitant]
     Indication: ESSENTIAL HYPERTENSION
     Dosage: UNK
     Dates: start: 20020816

REACTIONS (1)
  - PITUITARY TUMOUR BENIGN [None]
